FAERS Safety Report 21483387 (Version 1)
Quarter: 2022Q4

REPORT INFORMATION
  Report Type: Spontaneous
  Country: US (occurrence: US)
  Receive Date: 20221020
  Receipt Date: 20221020
  Transmission Date: 20230113
  Serious: No
  Sender: FDA-Public Use
  Company Number: US-CELLTRION INC.-2022US002879

PATIENT

DRUGS (2)
  1. INFLECTRA [Suspect]
     Active Substance: INFLIXIMAB-DYYB
     Indication: Hidradenitis
     Dosage: INJECT 400 MG OF INFLECTRA FREQUENCY: EVERY 4 WEEKS QUANTITY: 1 REFILLS
     Route: 065
  2. INFLECTRA [Suspect]
     Active Substance: INFLIXIMAB-DYYB
     Dosage: INFUSE 400 MG INFLECTRA IVPB EVERY 28 DAYS
     Route: 065

REACTIONS (2)
  - Hidradenitis [Unknown]
  - Off label use [Unknown]
